FAERS Safety Report 9413459 (Version 1)
Quarter: 2013Q3

REPORT INFORMATION
  Report Type: Spontaneous
  Country: US (occurrence: US)
  Receive Date: 20130722
  Receipt Date: 20130722
  Transmission Date: 20140515
  Serious: Yes (Other)
  Sender: FDA-Public Use
  Company Number: US-TEVA-419694USA

PATIENT
  Age: 44 Year
  Sex: Male

DRUGS (1)
  1. PRAMIPEXOLE [Suspect]
     Indication: PARKINSON^S DISEASE
     Dosage: 3MG/DAY
     Route: 065

REACTIONS (5)
  - Drug abuse [Recovered/Resolved]
  - Anxiety [Recovered/Resolved]
  - Compulsive hoarding [Recovered/Resolved]
  - Pathological gambling [Recovered/Resolved]
  - Impulse-control disorder [Recovered/Resolved]
